FAERS Safety Report 18427026 (Version 1)
Quarter: 2020Q4

REPORT INFORMATION
  Report Type: Spontaneous
  Country: US (occurrence: US)
  Receive Date: 20201026
  Receipt Date: 20201026
  Transmission Date: 20210114
  Serious: No
  Sender: FDA-Public Use
  Company Number: None

PATIENT
  Sex: Female

DRUGS (6)
  1. ASPIRIN. [Concomitant]
     Active Substance: ASPIRIN
  2. FLECAINIDE [Concomitant]
     Active Substance: FLECAINIDE
  3. ESBRIET [Suspect]
     Active Substance: PIRFENIDONE
     Indication: IDIOPATHIC PULMONARY FIBROSIS
     Route: 048
     Dates: start: 20181101
  4. CEPHALEXIN. [Concomitant]
     Active Substance: CEPHALEXIN
  5. PRAVASTATIN. [Concomitant]
     Active Substance: PRAVASTATIN
  6. BUMEX [Concomitant]
     Active Substance: BUMETANIDE

REACTIONS (2)
  - Product dose omission issue [None]
  - Catheterisation cardiac [None]
